FAERS Safety Report 10731380 (Version 3)
Quarter: 2015Q1

REPORT INFORMATION
  Report Type: Spontaneous
  Country: FR (occurrence: FR)
  Receive Date: 20150123
  Receipt Date: 20150127
  Transmission Date: 20150721
  Serious: Yes (Hospitalization, Disabling, Other)
  Sender: FDA-Public Use
  Company Number: FR-ASTRAZENECA-2015SE04871

PATIENT
  Age: 76 Year
  Sex: Female

DRUGS (5)
  1. OMEPRAZOLE ZENTIVA (NON AZ PRODUCT) [Suspect]
     Active Substance: OMEPRAZOLE
     Indication: HIATUS HERNIA
     Route: 048
  2. LANSOPRAZOLE ZENTIVA (NON AZ PRODUCT) [Suspect]
     Active Substance: LANSOPRAZOLE
     Indication: HIATUS HERNIA
     Route: 048
  3. CARDIOCOR [Concomitant]
  4. FLECAINE [Concomitant]
     Active Substance: FLECAINIDE
  5. MOPRAL [Suspect]
     Active Substance: OMEPRAZOLE SODIUM
     Indication: HIATUS HERNIA
     Route: 048

REACTIONS (5)
  - Upper limb fracture [Not Recovered/Not Resolved]
  - Fall [Unknown]
  - Thoracic vertebral fracture [Not Recovered/Not Resolved]
  - Pain [Unknown]
  - Lumbar vertebral fracture [Not Recovered/Not Resolved]

NARRATIVE: CASE EVENT DATE: 20130507
